FAERS Safety Report 9550938 (Version 5)
Quarter: 2016Q4

REPORT INFORMATION
  Report Type: Report from Study
  Country: US (occurrence: US)
  Receive Date: 20130924
  Receipt Date: 20161219
  Transmission Date: 20170207
  Serious: Yes (Other)
  Sender: FDA-Public Use
  Company Number: US-SANOFI-AVENTIS-2013SA041742

PATIENT
  Age: 53 Year
  Sex: Female

DRUGS (4)
  1. BETASERON [Concomitant]
     Active Substance: INTERFERON BETA-1B
     Indication: MULTIPLE SCLEROSIS
     Dates: start: 20030301, end: 20130310
  2. AUBAGIO [Suspect]
     Active Substance: TERIFLUNOMIDE
     Indication: MULTIPLE SCLEROSIS
     Route: 048
  3. AUBAGIO [Suspect]
     Active Substance: TERIFLUNOMIDE
     Indication: MULTIPLE SCLEROSIS
     Route: 048
     Dates: start: 20130326
  4. AUBAGIO [Suspect]
     Active Substance: TERIFLUNOMIDE
     Indication: MULTIPLE SCLEROSIS
     Route: 048
     Dates: start: 20130326

REACTIONS (19)
  - Multiple sclerosis [Recovered/Resolved]
  - Memory impairment [Not Recovered/Not Resolved]
  - Nodule [Not Recovered/Not Resolved]
  - Abdominal pain upper [Recovered/Resolved]
  - Pain [Recovered/Resolved]
  - Ultrasound scan abnormal [Recovered/Resolved]
  - Hepatic enzyme increased [Not Recovered/Not Resolved]
  - Back pain [Not Recovered/Not Resolved]
  - Musculoskeletal stiffness [Not Recovered/Not Resolved]
  - Frustration tolerance decreased [Not Recovered/Not Resolved]
  - Abdominal discomfort [Recovered/Resolved]
  - Arthropod bite [Unknown]
  - Insomnia [Unknown]
  - Gait disturbance [Not Recovered/Not Resolved]
  - Weight decreased [Unknown]
  - Irritable bowel syndrome [Recovered/Resolved]
  - Blood alkaline phosphatase increased [Recovered/Resolved]
  - Pain in extremity [Not Recovered/Not Resolved]
  - Electromyogram abnormal [Not Recovered/Not Resolved]

NARRATIVE: CASE EVENT DATE: 20130408
